FAERS Safety Report 7221829-0 (Version None)
Quarter: 2011Q1

REPORT INFORMATION
  Report Type: 
  Country: None (occurrence: None)
  Receive Date: 20110112
  Receipt Date: 20110104
  Transmission Date: 20110831
  Serious: Yes (Other)
  Sender: FDA-Public Use
  Company Number: A0894507A

PATIENT
  Age: 91 Year
  Sex: Female

DRUGS (6)
  1. VITAMIN B [Concomitant]
  2. TRIAMTERENE [Concomitant]
  3. ADVAIR [Suspect]
     Indication: CHRONIC OBSTRUCTIVE PULMONARY DISEASE
     Dosage: 1PUFF TWICE PER DAY
     Route: 055
     Dates: start: 20080101
  4. A-Z VITAMIN [Concomitant]
  5. METOPROLOL [Concomitant]
  6. VITAMIN D [Concomitant]

REACTIONS (6)
  - OROPHARYNGEAL PAIN [None]
  - DYSPNOEA [None]
  - ANAEMIA [None]
  - DRUG INEFFECTIVE [None]
  - SECRETION DISCHARGE [None]
  - DRY MOUTH [None]
